FAERS Safety Report 20350375 (Version 2)
Quarter: 2022Q1

REPORT INFORMATION
  Report Type: Other
  Country: CN (occurrence: CN)
  Receive Date: 20220119
  Receipt Date: 20220215
  Transmission Date: 20220424
  Serious: Yes (Hospitalization, Other)
  Sender: FDA-Public Use
  Company Number: CH-DEXPHARM-20220064

PATIENT
  Sex: Female

DRUGS (12)
  1. OMEPRAZOLE [Interacting]
     Active Substance: OMEPRAZOLE
     Indication: Prophylaxis
     Dosage: INTERMITTENTLY
     Dates: start: 201606
  2. ACETAMINOPHEN [Suspect]
     Active Substance: ACETAMINOPHEN
     Route: 050
  3. BEVACIZUMAB [Interacting]
     Active Substance: BEVACIZUMAB
     Indication: Ovarian cancer
     Dosage: SHE RECEIVED BEVACIZUMAB ON 14 MARCH 2019 AND 28 MARCH 2019.?200MG FOR 90 MINUTES ON DAY 1.
     Dates: start: 20190314
  4. IRINOTECAN [Interacting]
     Active Substance: IRINOTECAN
     Indication: Ovarian cancer
     Dosage: IV IRINOTECAN 240MG FOR 90 MINUTES ON DAY 1.
     Route: 050
  5. ONDANSETRON [Interacting]
     Active Substance: ONDANSETRON
     Indication: Prophylaxis of nausea and vomiting
     Dosage: IV ONDANSETRON 8MG ONCE DAILY
     Route: 050
  6. METOCLOPRAMIDE [Interacting]
     Active Substance: METOCLOPRAMIDE
     Dosage: IM METOCLOPRAMIDE 10MG ONCE DAILY.
     Route: 050
  7. HYDROTALCITE [Interacting]
     Active Substance: HYDROTALCITE
     Dosage: 1G TABLETS THREE TIMES DAILY.
  8. SUCRALFATE [Suspect]
     Active Substance: SUCRALFATE
     Dates: start: 201606
  9. TROPISETRON [Interacting]
     Active Substance: TROPISETRON
     Dosage: 5 MG IV QD
     Route: 050
  10. OMEPRAZOLE [Interacting]
     Active Substance: OMEPRAZOLE
     Indication: Gastrooesophageal reflux disease
     Dosage: 40 MG PO QD
     Route: 050
     Dates: start: 20190314
  11. OMEPRAZOLE [Interacting]
     Active Substance: OMEPRAZOLE
     Indication: Gastrooesophageal reflux disease
     Dosage: 60 MG IVG TT QD
  12. Veldimir [Concomitant]
     Indication: Gastrointestinal disorder prophylaxis
     Dosage: 1 G PO TID

REACTIONS (16)
  - Drug ineffective [Recovered/Resolved]
  - Haematemesis [Recovered/Resolved]
  - Chest pain [Recovered/Resolved]
  - Dysphoria [Recovered/Resolved]
  - Dysphagia [Recovered/Resolved]
  - Shock haemorrhagic [Recovered/Resolved]
  - Hypotension [Recovered/Resolved]
  - Confusional state [Recovered/Resolved]
  - Chronic gastritis [Recovered/Resolved]
  - Nausea [Recovered/Resolved]
  - Vomiting [Recovered/Resolved]
  - Decreased appetite [Not Recovered/Not Resolved]
  - Haematoma [Recovered/Resolved]
  - Upper gastrointestinal haemorrhage [Recovered/Resolved]
  - Drug dependence [Not Recovered/Not Resolved]
  - Drug interaction [Recovered/Resolved]

NARRATIVE: CASE EVENT DATE: 20160601
